FAERS Safety Report 4701381-1 (Version None)
Quarter: 2005Q2

REPORT INFORMATION
  Report Type: 
  Country: None (occurrence: None)
  Receive Date: 20050627
  Receipt Date: 20050615
  Transmission Date: 20051028
  Serious: Yes (Other)
  Sender: FDA-Public Use
  Company Number: A-CH2005-09955

PATIENT
  Age: 70 Year
  Sex: Male

DRUGS (8)
  1. TRACLEER [Suspect]
     Indication: IDIOPATHIC PULMONARY FIBROSIS
     Dosage: SEE IMAGE
     Route: 048
     Dates: start: 20041101, end: 20041201
  2. TRACLEER [Suspect]
     Indication: IDIOPATHIC PULMONARY FIBROSIS
     Dosage: SEE IMAGE
     Route: 048
     Dates: start: 20041201, end: 20050411
  3. FORADIL [Concomitant]
  4. SANASTHMAX               (BECLOMETASONE DIPROPIONATE) [Concomitant]
  5. DECOTRIN (PREDNISONE) [Concomitant]
  6. ACC (ACETYLCYSTEINE) [Concomitant]
  7. DIGOXIN [Concomitant]
  8. MARCUMAR (HENPROCOUMON) [Concomitant]

REACTIONS (1)
  - ALANINE AMINOTRANSFERASE INCREASED [None]
